FAERS Safety Report 5554542-6 (Version None)
Quarter: 2007Q4

REPORT INFORMATION
  Report Type: 
  Country: None (occurrence: None)
  Receive Date: 20071130
  Receipt Date: 20070814
  Transmission Date: 20080405
  Serious: No
  Sender: FDA-Public Use
  Company Number: US200706004972

PATIENT
  Age: 60 Year
  Sex: Female
  Weight: 107 kg

DRUGS (9)
  1. BYETTA [Suspect]
     Indication: TYPE 2 DIABETES MELLITUS
     Dosage: 5 UG, 2/D, SUBCUTANEOUS
     Route: 058
     Dates: start: 20070420
  2. GLUCOPHAGE [Concomitant]
  3. MICRONASE [Concomitant]
  4. LASIX [Concomitant]
  5. LODINE [Concomitant]
  6. VOLTAREN /SCH/ (DICLOFENAC SODIUM) [Concomitant]
  7. DARVOCET-N 100 [Concomitant]
  8. VASOTEC [Concomitant]
  9. METFORMIN HCL [Concomitant]

REACTIONS (2)
  - INJECTION SITE IRRITATION [None]
  - URTICARIA [None]
